FAERS Safety Report 8272307-1 (Version None)
Quarter: 2012Q2

REPORT INFORMATION
  Report Type: 
  Country: None (occurrence: None)
  Receive Date: 20120410
  Receipt Date: 20120326
  Transmission Date: 20120825
  Serious: Yes (Hospitalization)
  Sender: FDA-Public Use
  Company Number: GB-WATSON-2012-05785

PATIENT
  Age: 86 Year
  Sex: Female

DRUGS (6)
  1. ERTAPENEM [Suspect]
     Indication: CHOLECYSTITIS
     Dosage: 1 G, DAILY
     Route: 042
     Dates: start: 20110221, end: 20110223
  2. PIPERACILLIN AND TAZOBACTAM [Suspect]
     Indication: CHOLECYSTITIS
     Dosage: 4.5 G, TID
     Route: 042
     Dates: start: 20110224, end: 20110302
  3. AMOXICILLIN [Suspect]
     Indication: PRODUCT USED FOR UNKNOWN INDICATION
     Dosage: 500 MG, TID
     Route: 048
     Dates: start: 20110408, end: 20110409
  4. TRIMETHOPRIM [Suspect]
     Indication: PRODUCT USED FOR UNKNOWN INDICATION
     Dosage: 200 MG, BID
     Route: 048
     Dates: start: 20100716, end: 20100718
  5. LEVOFLOXACIN [Suspect]
     Indication: PRODUCT USED FOR UNKNOWN INDICATION
     Dosage: 500 MG, BID
     Route: 048
     Dates: start: 20100223, end: 20100227
  6. CEPHALEXIN [Suspect]
     Indication: URINARY TRACT INFECTION
     Dosage: 250 MG, BID
     Route: 048
     Dates: start: 20110413, end: 20110417

REACTIONS (1)
  - CLOSTRIDIAL INFECTION [None]
